FAERS Safety Report 5063596-5 (Version None)
Quarter: 2006Q3

REPORT INFORMATION
  Report Type: 
  Country: None (occurrence: None)
  Receive Date: 20060727
  Receipt Date: 20051207
  Transmission Date: 20061208
  Serious: Yes (Death)
  Sender: FDA-Public Use
  Company Number: JP-ROCHE-427693

PATIENT
  Age: 84 Year
  Sex: Male

DRUGS (1)
  1. PANALDINE [Suspect]
     Indication: DRUG USE FOR UNKNOWN INDICATION
     Route: 048
     Dates: start: 20030815, end: 20030915

REACTIONS (2)
  - INTERSTITIAL LUNG DISEASE [None]
  - LIVER DISORDER [None]
